FAERS Safety Report 5645702-4 (Version None)
Quarter: 2008Q1

REPORT INFORMATION
  Report Type: 
  Country: None (occurrence: None)
  Receive Date: 20080229
  Receipt Date: 20080225
  Transmission Date: 20080703
  Serious: Yes (Other)
  Sender: FDA-Public Use
  Company Number: BE-BOEHRINGER INGELHEIM GMBH, GERMANY-2008-BP-02743RO

PATIENT
  Age: 51 Year
  Sex: Female

DRUGS (4)
  1. AZATHIOPRINE [Suspect]
     Indication: IMMUNOSUPPRESSION
     Dates: start: 19950401
  2. PREDNISONE TAB [Suspect]
     Indication: IMMUNOSUPPRESSION
     Dates: start: 19950401
  3. CYCLOSPORINE [Suspect]
     Indication: IMMUNOSUPPRESSION
     Dates: start: 19950401
  4. VALGANCICLOVIR HCL [Concomitant]
     Indication: SYSTEMIC ANTIVIRAL TREATMENT
     Dates: start: 20041101, end: 20050401

REACTIONS (4)
  - COMPLICATIONS OF TRANSPLANTED KIDNEY [None]
  - EPSTEIN-BARR VIRUS INFECTION [None]
  - NEPHROPATHY TOXIC [None]
  - SMOOTH MUSCLE CELL NEOPLASM [None]
